FAERS Safety Report 13408958 (Version 2)
Quarter: 2017Q2

REPORT INFORMATION
  Report Type: Spontaneous
  Country: US (occurrence: US)
  Receive Date: 20170406
  Receipt Date: 20170607
  Transmission Date: 20170830
  Serious: No
  Sender: FDA-Public Use
  Company Number: US-JNJFOC-20170110057

PATIENT
  Sex: Male

DRUGS (25)
  1. RISPERIDONE. [Suspect]
     Active Substance: RISPERIDONE
     Indication: SPEECH SOUND DISORDER
     Route: 048
     Dates: start: 20060630
  2. RISPERIDONE. [Suspect]
     Active Substance: RISPERIDONE
     Indication: ATTENTION DEFICIT/HYPERACTIVITY DISORDER
     Route: 048
     Dates: start: 20080805, end: 20090410
  3. RISPERIDONE. [Suspect]
     Active Substance: RISPERIDONE
     Indication: ATTENTION DEFICIT/HYPERACTIVITY DISORDER
     Route: 048
     Dates: start: 20080805, end: 20090410
  4. RISPERDAL [Suspect]
     Active Substance: RISPERIDONE
     Indication: ANXIETY DISORDER
     Route: 048
     Dates: start: 20060630, end: 20090610
  5. RISPERDAL [Suspect]
     Active Substance: RISPERIDONE
     Indication: AUTISM SPECTRUM DISORDER
     Route: 048
     Dates: start: 20060630, end: 20090610
  6. RISPERIDONE. [Suspect]
     Active Substance: RISPERIDONE
     Indication: AUTISM SPECTRUM DISORDER
     Route: 048
     Dates: start: 20060630
  7. RISPERDAL [Suspect]
     Active Substance: RISPERIDONE
     Indication: ATTENTION DEFICIT/HYPERACTIVITY DISORDER
     Route: 048
     Dates: start: 20060630, end: 20090610
  8. RISPERIDONE. [Suspect]
     Active Substance: RISPERIDONE
     Indication: SPEECH SOUND DISORDER
     Route: 048
     Dates: start: 2009, end: 20090610
  9. RISPERIDONE. [Suspect]
     Active Substance: RISPERIDONE
     Indication: ANXIETY DISORDER
     Route: 048
     Dates: start: 2009, end: 20090610
  10. RISPERIDONE. [Suspect]
     Active Substance: RISPERIDONE
     Indication: ANXIETY DISORDER
     Route: 048
     Dates: start: 20060630
  11. RISPERIDONE. [Suspect]
     Active Substance: RISPERIDONE
     Indication: ATTENTION DEFICIT/HYPERACTIVITY DISORDER
     Route: 048
     Dates: start: 2009, end: 20090610
  12. RISPERIDONE. [Suspect]
     Active Substance: RISPERIDONE
     Indication: ATTENTION DEFICIT/HYPERACTIVITY DISORDER
     Route: 048
     Dates: start: 2009, end: 20090610
  13. RISPERIDONE. [Suspect]
     Active Substance: RISPERIDONE
     Indication: PRODUCT USED FOR UNKNOWN INDICATION
     Route: 065
  14. RISPERDAL [Suspect]
     Active Substance: RISPERIDONE
     Indication: DEVELOPMENTAL COORDINATION DISORDER
     Route: 048
     Dates: start: 20060630, end: 20090610
  15. RISPERIDONE. [Suspect]
     Active Substance: RISPERIDONE
     Indication: ANXIETY DISORDER
     Route: 048
     Dates: start: 20080805, end: 20090410
  16. RISPERIDONE. [Suspect]
     Active Substance: RISPERIDONE
     Indication: DEVELOPMENTAL COORDINATION DISORDER
     Route: 048
     Dates: start: 2009, end: 20090610
  17. RISPERIDONE. [Suspect]
     Active Substance: RISPERIDONE
     Indication: DEVELOPMENTAL COORDINATION DISORDER
     Route: 048
     Dates: start: 20060630
  18. RISPERIDONE. [Suspect]
     Active Substance: RISPERIDONE
     Indication: AUTISM SPECTRUM DISORDER
     Route: 048
     Dates: start: 20080805, end: 20090410
  19. RISPERDAL [Suspect]
     Active Substance: RISPERIDONE
     Indication: ATTENTION DEFICIT/HYPERACTIVITY DISORDER
     Route: 048
     Dates: start: 20060630, end: 20090610
  20. RISPERIDONE. [Suspect]
     Active Substance: RISPERIDONE
     Indication: SPEECH SOUND DISORDER
     Route: 048
     Dates: start: 20080805, end: 20090410
  21. RISPERDAL [Suspect]
     Active Substance: RISPERIDONE
     Indication: SPEECH SOUND DISORDER
     Route: 048
     Dates: start: 20060630, end: 20090610
  22. RISPERIDONE. [Suspect]
     Active Substance: RISPERIDONE
     Indication: ATTENTION DEFICIT/HYPERACTIVITY DISORDER
     Route: 048
     Dates: start: 20060630
  23. RISPERIDONE. [Suspect]
     Active Substance: RISPERIDONE
     Indication: ATTENTION DEFICIT/HYPERACTIVITY DISORDER
     Route: 048
     Dates: start: 20060630
  24. RISPERIDONE. [Suspect]
     Active Substance: RISPERIDONE
     Indication: DEVELOPMENTAL COORDINATION DISORDER
     Route: 048
     Dates: start: 20080805, end: 20090410
  25. RISPERIDONE. [Suspect]
     Active Substance: RISPERIDONE
     Indication: AUTISM SPECTRUM DISORDER
     Route: 048
     Dates: start: 2009, end: 20090610

REACTIONS (3)
  - Emotional distress [Unknown]
  - Weight increased [Unknown]
  - Gynaecomastia [Unknown]
